FAERS Safety Report 21950168 (Version 2)
Quarter: 2023Q2

REPORT INFORMATION
  Report Type: Spontaneous
  Country: CA (occurrence: CA)
  Receive Date: 20230203
  Receipt Date: 20230519
  Transmission Date: 20230721
  Serious: Yes (Other)
  Sender: FDA-Public Use
  Company Number: CA-002147023-NVSC2023CA017928

PATIENT
  Age: 85 Year
  Sex: Male

DRUGS (24)
  1. ATORVASTATIN CALCIUM [Interacting]
     Active Substance: ATORVASTATIN CALCIUM
     Indication: Product used for unknown indication
     Dosage: UNK
     Route: 065
  2. METOPROLOL [Interacting]
     Active Substance: METOPROLOL
     Indication: Product used for unknown indication
     Dosage: UNK
     Route: 065
  3. PANTOPRAZOLE [Interacting]
     Active Substance: PANTOPRAZOLE
     Indication: Product used for unknown indication
     Dosage: UNK
     Route: 065
  4. VITAMIN C [Interacting]
     Active Substance: ASCORBIC ACID
     Indication: Product used for unknown indication
     Dosage: UNK
     Route: 065
  5. METOPROLOL [Interacting]
     Active Substance: METOPROLOL
     Indication: Product used for unknown indication
     Dosage: UNK
     Route: 065
  6. ASPIRIN [Interacting]
     Active Substance: ASPIRIN
     Indication: Product used for unknown indication
     Dosage: UNK (DAILY LOW DOSE)
     Route: 065
  7. DABIGATRAN [Interacting]
     Active Substance: DABIGATRAN
     Indication: Atrial fibrillation
     Dosage: 150 MG, BID (2 EVERY 1 DAY)
     Route: 065
  8. DABIGATRAN [Interacting]
     Active Substance: DABIGATRAN
     Dosage: UNK, QD (1 EVERY 1 DAY)
     Route: 065
  9. DABIGATRAN [Interacting]
     Active Substance: DABIGATRAN
     Dosage: UNK, QD (1 EVERY 1 DAY)
     Route: 065
  10. DABIGATRAN [Interacting]
     Active Substance: DABIGATRAN
     Dosage: UNK, BID (2 EVERY 1 DAY)
     Route: 065
  11. DABIGATRAN [Interacting]
     Active Substance: DABIGATRAN
     Dosage: 2 DOSAGE FORM, QD (1 EVERY 1 DAY)
     Route: 065
  12. DABIGATRAN [Interacting]
     Active Substance: DABIGATRAN
     Dosage: UNK
     Route: 065
  13. DABIGATRAN [Interacting]
     Active Substance: DABIGATRAN
     Dosage: 150 MG, BID (2 EVERY 1 DAY)
     Route: 065
  14. DABIGATRAN ETEXILATE MESYLATE [Interacting]
     Active Substance: DABIGATRAN ETEXILATE MESYLATE
     Indication: Atrial fibrillation
     Dosage: UNK, BID (2 EVERY 1 DAY)
     Route: 065
  15. DABIGATRAN ETEXILATE MESYLATE [Interacting]
     Active Substance: DABIGATRAN ETEXILATE MESYLATE
     Dosage: UNK, BID (2 EVERY 1 DAY)
     Route: 065
  16. DABIGATRAN ETEXILATE MESYLATE [Interacting]
     Active Substance: DABIGATRAN ETEXILATE MESYLATE
     Dosage: 2 DOSAGE FORM, QD (1 EVERY 1 DAY)
     Route: 065
  17. ELIQUIS [Interacting]
     Active Substance: APIXABAN
     Indication: Cerebrovascular accident prophylaxis
     Dosage: 2 DOSAGE FORM, QD (1 EVERY 1 DAY)
     Route: 065
  18. ELIQUIS [Interacting]
     Active Substance: APIXABAN
     Dosage: 5 MG, BID (2 EVERY 1 DAY)
     Route: 065
  19. ELIQUIS [Interacting]
     Active Substance: APIXABAN
     Dosage: 5 MG, BID (2 EVERY 1 DAYS) (FORMULATION: TABLET)
     Route: 065
  20. ELIQUIS [Interacting]
     Active Substance: APIXABAN
     Dosage: 5 MG, BID (2 EVERY 1 DAYS)
     Route: 065
  21. PANTOPRAZOLE SODIUM [Interacting]
     Active Substance: PANTOPRAZOLE SODIUM
     Indication: Product used for unknown indication
     Dosage: UNK (ENTERIC COATED TABLET)
     Route: 065
  22. WARFARIN SODIUM [Interacting]
     Active Substance: WARFARIN SODIUM
     Indication: Atrial fibrillation
     Dosage: UNK
     Route: 065
  23. WARFARIN SODIUM [Interacting]
     Active Substance: WARFARIN SODIUM
     Indication: Atrial fibrillation
     Dosage: UNK
     Route: 065
  24. ASPIRIN [Interacting]
     Active Substance: ASPIRIN
     Indication: Product used for unknown indication
     Dosage: UNK
     Route: 065

REACTIONS (3)
  - Cerebrovascular accident [Unknown]
  - Drug interaction [Unknown]
  - Treatment failure [Unknown]
